FAERS Safety Report 4449784-7 (Version None)
Quarter: 2004Q3

REPORT INFORMATION
  Report Type: 
  Country: None (occurrence: None)
  Receive Date: 20040802
  Receipt Date: 20040421
  Transmission Date: 20050211
  Serious: No
  Sender: FDA-Public Use
  Company Number: 2004-115335-NL

PATIENT
  Sex: Female
  Weight: 110.9 kg

DRUGS (2)
  1. NUVARING [Suspect]
     Indication: CONTRACEPTION
     Dosage: DF DAILY VAGINAL
     Route: 067
     Dates: start: 20030601, end: 20031201
  2. PAXIL [Concomitant]

REACTIONS (1)
  - MENSTRUAL DISORDER [None]
